FAERS Safety Report 18457035 (Version 1)
Quarter: 2020Q4

REPORT INFORMATION
  Report Type: Spontaneous
  Country: US (occurrence: US)
  Receive Date: 20201102
  Receipt Date: 20201102
  Transmission Date: 20210114
  Serious: Yes (Other)
  Sender: FDA-Public Use
  Company Number: None

PATIENT
  Age: 61 Year
  Sex: Female

DRUGS (6)
  1. HYDROCODONE/ACETAMINOPHEN [Concomitant]
     Active Substance: ACETAMINOPHEN\HYDROCODONE
  2. MELOXICAM. [Concomitant]
     Active Substance: MELOXICAM
  3. VITAMIN D [Concomitant]
     Active Substance: VITAMIN D NOS
  4. PREGABALIN. [Concomitant]
     Active Substance: PREGABALIN
  5. PROLIA [Suspect]
     Active Substance: DENOSUMAB
     Indication: OSTEOPOROSIS
     Dosage: ?          OTHER FREQUENCY:EVERY 6 MONTHS;?
     Route: 058
     Dates: start: 20180530, end: 20200530
  6. CALCIUM [Concomitant]
     Active Substance: CALCIUM

REACTIONS (8)
  - Arthralgia [None]
  - Pain [None]
  - Mobility decreased [None]
  - Fibromyalgia [None]
  - Impaired quality of life [None]
  - Myalgia [None]
  - Loss of personal independence in daily activities [None]
  - Back pain [None]

NARRATIVE: CASE EVENT DATE: 20190530
